FAERS Safety Report 4625040-9 (Version None)
Quarter: 2005Q2

REPORT INFORMATION
  Report Type: 
  Country: None (occurrence: None)
  Receive Date: 20050401
  Receipt Date: 20050322
  Transmission Date: 20051028
  Serious: Yes (Disabling)
  Sender: FDA-Public Use
  Company Number: GB-BRISTOL-MYERS SQUIBB COMPANY-12906269

PATIENT
  Sex: Male

DRUGS (5)
  1. ABILIFY [Suspect]
     Indication: SCHIZOPHRENIA
     Route: 048
     Dates: start: 20041001
  2. TEMAZEPAM [Concomitant]
     Route: 048
  3. VITAMIN B COMPLEX CAP [Concomitant]
     Indication: ALCOHOLISM
     Route: 048
     Dates: start: 20041101
  4. THIAMINE [Concomitant]
     Indication: ALCOHOLISM
     Route: 048
     Dates: start: 20041101
  5. VIOXX [Concomitant]
     Dates: end: 20041201

REACTIONS (1)
  - CARDIAC FAILURE CONGESTIVE [None]
